FAERS Safety Report 23301082 (Version 2)
Quarter: 2023Q4

REPORT INFORMATION
  Report Type: Report from Study
  Country: US (occurrence: US)
  Receive Date: 20231215
  Receipt Date: 20231221
  Transmission Date: 20240109
  Serious: Yes (Hospitalization, Other)
  Sender: FDA-Public Use
  Company Number: US-GILEAD-2023-0654869

PATIENT
  Age: 67 Year
  Sex: Female

DRUGS (3)
  1. AMBRISENTAN [Suspect]
     Active Substance: AMBRISENTAN
     Indication: Pulmonary arterial hypertension
     Dosage: 5 MG, QD
     Route: 065
     Dates: start: 20210618
  2. ELIQUIS [Concomitant]
     Active Substance: APIXABAN
  3. ADEMPAS [Concomitant]
     Active Substance: RIOCIGUAT

REACTIONS (16)
  - Atrial fibrillation [Unknown]
  - Cholelithiasis [Unknown]
  - Pulmonary thrombosis [Unknown]
  - Cardioversion [Unknown]
  - Dehydration [Unknown]
  - Pneumonia [Unknown]
  - Syncope [Unknown]
  - Hypoacusis [Unknown]
  - Pancreatitis [Unknown]
  - COVID-19 [Unknown]
  - Hypotension [Unknown]
  - Fluid retention [Unknown]
  - Nasal congestion [Unknown]
  - Tachycardia [Unknown]
  - Asthenia [Unknown]
  - Heart rate increased [Unknown]

NARRATIVE: CASE EVENT DATE: 20230701
